FAERS Safety Report 11766615 (Version 1)
Quarter: 2015Q4

REPORT INFORMATION
  Report Type: Spontaneous
  Country: US (occurrence: US)
  Receive Date: 20151123
  Receipt Date: 20151123
  Transmission Date: 20160304
  Serious: Yes (Other)
  Sender: FDA-Public Use
  Company Number: US-AMGEN-208765

PATIENT
  Age: 70 Year
  Sex: Female

DRUGS (2)
  1. AMINOCAMPTOTHECIN [Concomitant]
     Dosage: 47 UNK, UNK
     Dates: start: 19960701
  2. NEUPOGEN [Suspect]
     Active Substance: FILGRASTIM
     Indication: CHEMOTHERAPY
     Dosage: 5 MUG/KG, QD
     Route: 065
     Dates: start: 19960705

REACTIONS (1)
  - Calcinosis [Not Recovered/Not Resolved]

NARRATIVE: CASE EVENT DATE: 19960809
